FAERS Safety Report 25401852 (Version 1)
Quarter: 2025Q2

REPORT INFORMATION
  Report Type: Spontaneous
  Country: CA (occurrence: CA)
  Receive Date: 20250605
  Receipt Date: 20250605
  Transmission Date: 20250716
  Serious: Yes (Other)
  Sender: ANI
  Company Number: CA-ANIPHARMA-2021-CA-000337

PATIENT
  Age: 68 Year
  Sex: Male
  Weight: 77 kg

DRUGS (7)
  1. CANDESARTAN CILEXETIL [Suspect]
     Active Substance: CANDESARTAN CILEXETIL
     Indication: Product used for unknown indication
     Route: 048
  2. WIXELA INHUB [Suspect]
     Active Substance: FLUTICASONE PROPIONATE\SALMETEROL XINAFOATE
  3. FLOVENT [Suspect]
     Active Substance: FLUTICASONE PROPIONATE
     Dates: start: 20160111
  4. PREDNISONE [Suspect]
     Active Substance: PREDNISONE
     Route: 065
  5. ALBUTEROL SULFATE [Suspect]
     Active Substance: ALBUTEROL SULFATE
     Route: 065
  6. TIOTROPIUM BROMIDE [Suspect]
     Active Substance: TIOTROPIUM BROMIDE
     Route: 065
  7. ADVAIR HFA [Suspect]
     Active Substance: FLUTICASONE PROPIONATE\SALMETEROL XINAFOATE
     Route: 065
     Dates: start: 20160111

REACTIONS (19)
  - Asthma [Unknown]
  - Fatigue [Unknown]
  - Increased viscosity of bronchial secretion [Unknown]
  - Left ventricular dysfunction [Unknown]
  - Loss of personal independence in daily activities [Unknown]
  - Lung disorder [Unknown]
  - Muscular weakness [Unknown]
  - Myopathy [Unknown]
  - Obstructive airways disorder [Unknown]
  - Oxygen saturation abnormal [Unknown]
  - Wheezing [Unknown]
  - Therapeutic product effect incomplete [Unknown]
  - Full blood count abnormal [Unknown]
  - Cardiac dysfunction [Unknown]
  - Chronic obstructive pulmonary disease [Unknown]
  - Diastolic hypertension [Unknown]
  - Dyspnoea [Unknown]
  - Eosinophilic bronchitis [Unknown]
  - Expiratory reserve volume decreased [Unknown]
